FAERS Safety Report 4974059-7 (Version None)
Quarter: 2006Q2

REPORT INFORMATION
  Report Type: 
  Country: None (occurrence: None)
  Receive Date: 20060417
  Receipt Date: 20060209
  Transmission Date: 20061013
  Serious: Yes (Other)
  Sender: FDA-Public Use
  Company Number: US-GLAXOSMITHKLINE-A0593050A

PATIENT
  Age: 16 Year
  Sex: Female
  Weight: 59.1 kg

DRUGS (3)
  1. WELLBUTRIN XL [Suspect]
     Indication: DYSTHYMIC DISORDER
     Dosage: 300MG PER DAY
     Route: 048
  2. STRATTERA [Suspect]
     Indication: ATTENTION DEFICIT/HYPERACTIVITY DISORDER
     Dosage: 40MG PER DAY
     Route: 048
  3. SUMATRIPTAN SUCCINATE [Suspect]
     Indication: MIGRAINE
     Dates: start: 20051001

REACTIONS (12)
  - ABDOMINAL PAIN UPPER [None]
  - AKATHISIA [None]
  - DISTURBANCE IN ATTENTION [None]
  - DRUG INEFFECTIVE [None]
  - DRUG WITHDRAWAL SYNDROME [None]
  - DYSKINESIA [None]
  - FLATULENCE [None]
  - IRRITABILITY [None]
  - MYOCLONUS [None]
  - PAIN [None]
  - TEMPORAL LOBE EPILEPSY [None]
  - WEIGHT DECREASED [None]
